FAERS Safety Report 6928109-9 (Version None)
Quarter: 2010Q3

REPORT INFORMATION
  Report Type: 
  Country: None (occurrence: None)
  Receive Date: 20100812
  Receipt Date: 20100729
  Transmission Date: 20110219
  Serious: Yes (Death, Other)
  Sender: FDA-Public Use
  Company Number: FKO201000301

PATIENT
  Sex: Female

DRUGS (3)
  1. OXALIPLATIN [Suspect]
     Indication: PRODUCT USED FOR UNKNOWN INDICATION
  2. FLUOROURACIL [Concomitant]
  3. LEUCOVORIN (CALCIUM FOLINATE) (CALCIUM FOLINATE) [Concomitant]

REACTIONS (3)
  - HAEMORRHAGE INTRACRANIAL [None]
  - HEADACHE [None]
  - THROMBOCYTOPENIA [None]
